FAERS Safety Report 7297477-3 (Version None)
Quarter: 2011Q1

REPORT INFORMATION
  Report Type: 
  Country: None (occurrence: None)
  Receive Date: 20110216
  Receipt Date: 20110207
  Transmission Date: 20110831
  Serious: Yes (Other)
  Sender: FDA-Public Use
  Company Number: FR-ELI_LILLY_AND_COMPANY-FR201102002220

PATIENT
  Sex: Male

DRUGS (1)
  1. HUMULIN N [Suspect]
     Route: 058

REACTIONS (1)
  - SYNCOPE [None]
